FAERS Safety Report 10480547 (Version 1)
Quarter: 2014Q3

REPORT INFORMATION
  Report Type: Spontaneous
  Country: US (occurrence: None)
  Receive Date: 20140926
  Receipt Date: 20140926
  Transmission Date: 20150326
  Serious: Yes (Hospitalization)
  Sender: FDA-Public Use
  Company Number: None

PATIENT
  Age: 63 Year
  Sex: Male
  Weight: 80.9 kg

DRUGS (2)
  1. WARFARIN [Suspect]
     Active Substance: WARFARIN
     Dosage: MG, PO
     Route: 048
     Dates: start: 20140701
  2. WARFARIN [Suspect]
     Active Substance: WARFARIN
     Dosage: MG, PO
     Route: 048

REACTIONS (2)
  - International normalised ratio abnormal [None]
  - International normalised ratio decreased [None]

NARRATIVE: CASE EVENT DATE: 20140827
